FAERS Safety Report 6010831-2 (Version None)
Quarter: 2008Q4

REPORT INFORMATION
  Report Type: 
  Country: None (occurrence: None)
  Receive Date: 20081218
  Receipt Date: 20081212
  Transmission Date: 20090506
  Serious: Yes (Other)
  Sender: FDA-Public Use
  Company Number: PHHY2008DE29156

PATIENT
  Sex: Male

DRUGS (7)
  1. MYFORTIC [Suspect]
     Indication: PSORIASIS
     Dosage: 360 MG, BID
     Route: 048
     Dates: start: 20080101, end: 20080101
  2. DECORTIN [Suspect]
  3. CLOPIDOGREL [Concomitant]
  4. SIMVASTATIN [Concomitant]
  5. ASPIRIN [Concomitant]
  6. NEBILET [Concomitant]
  7. ACE-BLOCKER [Concomitant]

REACTIONS (1)
  - PANCREATITIS ACUTE [None]
